FAERS Safety Report 5669181-6 (Version None)
Quarter: 2008Q1

REPORT INFORMATION
  Report Type: 
  Country: None (occurrence: None)
  Receive Date: 20080317
  Receipt Date: 20080317
  Transmission Date: 20080703
  Serious: No
  Sender: FDA-Public Use
  Company Number: None

PATIENT
  Age: 51 Year
  Sex: Male
  Weight: 105.4 kg

DRUGS (1)
  1. HEPARIN [Suspect]
     Indication: POSTOPERATIVE CARE
     Dosage: 5,000 UNITS Q 12 HRS SQ
     Route: 058
     Dates: start: 20080305, end: 20080307

REACTIONS (1)
  - MUSCLE TWITCHING [None]
